FAERS Safety Report 6786035-2 (Version None)
Quarter: 2010Q2

REPORT INFORMATION
  Report Type: 
  Country: None (occurrence: None)
  Receive Date: 20100623
  Receipt Date: 20100609
  Transmission Date: 20101027
  Serious: Yes (Hospitalization)
  Sender: FDA-Public Use
  Company Number: PHHY2010CA37143

PATIENT
  Sex: Male

DRUGS (3)
  1. CLOZARIL [Suspect]
     Dosage: 200 MG, UNK
     Dates: start: 20090618, end: 20100605
  2. CLOZARIL [Suspect]
     Dosage: 300 MG, UNK
  3. METHAMPHETAMINE HYDROCHLORIDE [Suspect]
     Dosage: UNK

REACTIONS (4)
  - ABDOMINAL PAIN [None]
  - INTESTINAL OBSTRUCTION [None]
  - PNEUMONIA ASPIRATION [None]
  - VOMITING [None]
